FAERS Safety Report 8259376-X (Version None)
Quarter: 2012Q2

REPORT INFORMATION
  Report Type: 
  Country: None (occurrence: None)
  Receive Date: 20120404
  Receipt Date: 20120302
  Transmission Date: 20120825
  Serious: Yes (Other)
  Sender: FDA-Public Use
  Company Number: US-AMGEN-USASP2012014280

PATIENT
  Age: 57 Year
  Sex: Female

DRUGS (2)
  1. TREXALL [Concomitant]
     Dosage: 1 MG, UNK
     Dates: start: 20110201
  2. ENBREL [Suspect]
     Indication: RHEUMATOID ARTHRITIS
     Dosage: 50 MG, QWK
     Dates: start: 20111013, end: 20120208

REACTIONS (8)
  - COLONIC POLYP [None]
  - LACRIMATION INCREASED [None]
  - FATIGUE [None]
  - RHINORRHOEA [None]
  - PULMONARY OEDEMA [None]
  - RHEUMATOID ARTHRITIS [None]
  - NASAL CONGESTION [None]
  - SINUSITIS [None]
